FAERS Safety Report 7306240-6 (Version None)
Quarter: 2011Q1

REPORT INFORMATION
  Report Type: 
  Country: None (occurrence: None)
  Receive Date: 20110210
  Receipt Date: 20110128
  Transmission Date: 20110831
  Serious: Yes (Hospitalization, Other)
  Sender: FDA-Public Use
  Company Number: 012161

PATIENT
  Sex: Male

DRUGS (2)
  1. LACOSAMIDE [Suspect]
     Dosage: (ORAL)
     Route: 048
  2. KEPPRA [Concomitant]

REACTIONS (1)
  - STATUS EPILEPTICUS [None]
